FAERS Safety Report 17011647 (Version 3)
Quarter: 2019Q4

REPORT INFORMATION
  Report Type: Spontaneous
  Country: IT (occurrence: IT)
  Receive Date: 20191108
  Receipt Date: 20191218
  Transmission Date: 20200122
  Serious: Yes (Life-Threatening, Hospitalization, Other)
  Sender: FDA-Public Use
  Company Number: NVSC2019IT027376

PATIENT
  Age: 15 Month
  Sex: Female

DRUGS (1)
  1. AMOXICILLIN,CLAVULANIC ACID [Suspect]
     Active Substance: AMOXICILLIN\CLAVULANIC ACID
     Indication: PHARYNGITIS
     Route: 065

REACTIONS (7)
  - Lymphadenopathy [Recovered/Resolved]
  - Leukocytosis [Unknown]
  - Vulval ulceration [Recovered/Resolved]
  - Pseudomonas infection [Recovered/Resolved]
  - Ecthyma [Recovered/Resolved]
  - Eschar [Recovered/Resolved]
  - C-reactive protein increased [Unknown]
